FAERS Safety Report 4661907-3 (Version None)
Quarter: 2005Q2

REPORT INFORMATION
  Report Type: 
  Country: None (occurrence: None)
  Receive Date: 20050513
  Receipt Date: 20050127
  Transmission Date: 20051028
  Serious: Yes (Hospitalization, Disabling, Other)
  Sender: FDA-Public Use
  Company Number: US-MERCK-0501USA04334

PATIENT
  Age: 48 Year
  Sex: Male
  Weight: 91 kg

DRUGS (7)
  1. BEXTRA [Concomitant]
     Indication: BACK PAIN
     Route: 065
     Dates: start: 20040101
  2. OXYCODONE [Concomitant]
     Indication: BACK PAIN
     Route: 065
     Dates: start: 19890101, end: 20020101
  3. HYDROCODONE HYDROCHLORIDE [Concomitant]
     Indication: BACK PAIN
     Route: 065
     Dates: start: 19890101, end: 20020101
  4. VIOXX [Suspect]
     Indication: BACK PAIN
     Route: 048
     Dates: start: 19990601, end: 20040124
  5. VIOXX [Suspect]
     Route: 048
     Dates: start: 19990601, end: 20040124
  6. VIOXX [Suspect]
     Indication: INTERVERTEBRAL DISC PROTRUSION
     Route: 048
     Dates: start: 19990601, end: 20040124
  7. VIOXX [Suspect]
     Route: 048
     Dates: start: 19990601, end: 20040124

REACTIONS (12)
  - ATRIAL FIBRILLATION [None]
  - ATRIAL FLUTTER [None]
  - COLONIC POLYP [None]
  - DIVERTICULUM INTESTINAL [None]
  - HAEMORRHOIDS [None]
  - HYPERCHOLESTEROLAEMIA [None]
  - HYPERTENSION [None]
  - INTERVERTEBRAL DISC PROTRUSION [None]
  - MYOCARDIAL INFARCTION [None]
  - NON-OBSTRUCTIVE CARDIOMYOPATHY [None]
  - PALPITATIONS [None]
  - TENDONITIS [None]
